FAERS Safety Report 5403478-X (Version None)
Quarter: 2007Q3

REPORT INFORMATION
  Report Type: 
  Country: None (occurrence: None)
  Receive Date: 20070713
  Receipt Date: 20061113
  Transmission Date: 20080115
  Serious: Yes (Other)
  Sender: FDA-Public Use
  Company Number: 471247

PATIENT
  Age: 73 Year
  Sex: Female
  Weight: 53.5 kg

DRUGS (5)
  1. BONIVA [Suspect]
     Indication: OSTEOPOROSIS
     Dosage: 1 PER MONTH ORAL
     Route: 048
     Dates: start: 20061105, end: 20061105
  2. LOPRESSOR [Concomitant]
  3. LISINOPRIL [Concomitant]
  4. HYDRODIURIL [Concomitant]
  5. ALLEGRA [Concomitant]

REACTIONS (4)
  - ARTHRALGIA [None]
  - BONE PAIN [None]
  - MUSCULOSKELETAL PAIN [None]
  - PAIN IN JAW [None]
